FAERS Safety Report 14774195 (Version 3)
Quarter: 2018Q2

REPORT INFORMATION
  Report Type: Spontaneous
  Country: CH (occurrence: CH)
  Receive Date: 20180418
  Receipt Date: 20180511
  Transmission Date: 20180711
  Serious: Yes (Hospitalization, Other)
  Sender: FDA-Public Use
  Company Number: CH-ASTRAZENECA-2018SE49294

PATIENT
  Age: 30394 Day
  Sex: Male
  Weight: 89 kg

DRUGS (9)
  1. FORXIGA [Suspect]
     Active Substance: DAPAGLIFLOZIN
     Indication: TYPE 2 DIABETES MELLITUS
     Route: 048
     Dates: start: 20170111, end: 20170406
  2. ASPIRIN CARDIO [Concomitant]
     Active Substance: ASPIRIN
     Dosage: 100 MG, 1-0-0-0 PIECES
     Route: 048
  3. ATORVASTATIN [Concomitant]
     Active Substance: ATORVASTATIN
     Dosage: 40 MG, 0-0-1-0 PIECES
     Route: 048
  4. GLICLAZIDE [Concomitant]
     Active Substance: GLICLAZIDE
     Dosage: 30 MG, 3-0-0-0 PIECES
  5. DIAMICRON [Concomitant]
     Active Substance: GLICLAZIDE
  6. JANUMET XR [Concomitant]
     Active Substance: METFORMIN HYDROCHLORIDE\SITAGLIPTIN PHOSPHATE
     Dosage: 50/1000MG 2X (1-0-1-0 PIECES)
  7. VITALUX PLUS [Concomitant]
     Active Substance: VITAMINS
     Dosage: 0-1-0-0 PIECES
  8. CONDROSULF [Concomitant]
     Active Substance: SODIUM CHONDROITIN SULFATE
     Dosage: 800 MG 1-0-0-0 PIECES
  9. INSULIN [Concomitant]
     Active Substance: INSULIN NOS

REACTIONS (8)
  - Atrial tachycardia [Unknown]
  - Cerebellar artery occlusion [Unknown]
  - Supraventricular extrasystoles [Unknown]
  - Atrial fibrillation [Unknown]
  - Influenza like illness [Unknown]
  - Atrioventricular block first degree [Unknown]
  - Carotid artery stenosis [Unknown]
  - Cerebellar stroke [Recovered/Resolved]

NARRATIVE: CASE EVENT DATE: 20170225
